FAERS Safety Report 9466102 (Version 1)
Quarter: 2013Q3

REPORT INFORMATION
  Report Type: Spontaneous
  Country: US (occurrence: None)
  Receive Date: 20130816
  Receipt Date: 20130816
  Transmission Date: 20140515
  Serious: Yes (Other)
  Sender: FDA-Public Use
  Company Number: None

PATIENT
  Sex: Female
  Weight: 86.18 kg

DRUGS (1)
  1. LIPITOR [Suspect]

REACTIONS (5)
  - Joint swelling [None]
  - Influenza [None]
  - Fatigue [None]
  - Gastrooesophageal reflux disease [None]
  - Arthralgia [None]
